FAERS Safety Report 9516801 (Version 3)
Quarter: 2013Q3

REPORT INFORMATION
  Report Type: Spontaneous
  Country: US (occurrence: US)
  Receive Date: 20130911
  Receipt Date: 20130919
  Transmission Date: 20140515
  Serious: Yes (Hospitalization, Other)
  Sender: FDA-Public Use
  Company Number: US-GILEAD-2013-0079849

PATIENT
  Sex: Male

DRUGS (26)
  1. LETAIRIS [Suspect]
     Indication: PULMONARY ARTERIAL HYPERTENSION
     Dosage: 5 MG, QD
     Route: 048
     Dates: start: 20130620, end: 20130716
  2. LETAIRIS [Suspect]
     Indication: SLEEP APNOEA SYNDROME
  3. LETAIRIS [Suspect]
     Indication: CARDIAC FAILURE CONGESTIVE
  4. ADCIRCA [Concomitant]
     Dosage: 40 MG, QD
  5. DEMADEX                            /01036501/ [Concomitant]
  6. LYRICA [Concomitant]
     Dosage: 50 MG, QD
  7. WELLBUTRIN [Concomitant]
     Dosage: 300 MG, QD
  8. NORCO [Concomitant]
  9. PRILOSEC                           /00661201/ [Concomitant]
     Dosage: 20 MG, QD
  10. PREDNISONE [Concomitant]
     Dosage: 2 MG, QD
  11. INSULIN ISOPHANE [Concomitant]
  12. HUMALOG [Concomitant]
     Dosage: 24 DF, BID
  13. MIRALAX                            /00754501/ [Concomitant]
     Dosage: 17 G,BID PRN
  14. FLOMAX                             /00889901/ [Concomitant]
  15. ALLOPURINOL [Concomitant]
     Dosage: 100 MG, QD
  16. COUMADIN                           /00014802/ [Concomitant]
  17. CEFADROXIL [Concomitant]
  18. ZANTAC [Concomitant]
  19. LIPITOR [Concomitant]
     Dosage: 10 MG, QD
  20. CYMBALTA [Concomitant]
     Dosage: 60 MG, QD
  21. INSPRA                             /01362602/ [Concomitant]
     Dosage: 25 MG, QD
  22. ASPIRIN [Concomitant]
     Dosage: 81 MG, QD
  23. LIDODERM [Concomitant]
  24. VITAMINS NOS [Concomitant]
     Dosage: UNK, QD
  25. VITAMIN D3 [Concomitant]
     Dosage: 1000 DF, QD
  26. FOLIC ACID [Concomitant]
     Dosage: 1 MG, QD

REACTIONS (11)
  - Gastrointestinal haemorrhage [Unknown]
  - Acute respiratory failure [Unknown]
  - Coronary artery disease [Unknown]
  - Pneumonia [Unknown]
  - Pleural effusion [Unknown]
  - Renal failure acute [Unknown]
  - Blood glucose fluctuation [Unknown]
  - Haemoglobin decreased [Unknown]
  - Dyspnoea [Unknown]
  - Fluid retention [Unknown]
  - Oedema [Unknown]
